FAERS Safety Report 4442891-4 (Version None)
Quarter: 2004Q3

REPORT INFORMATION
  Report Type: 
  Country: None (occurrence: None)
  Receive Date: 20040907
  Receipt Date: 20040907
  Transmission Date: 20050211
  Serious: Yes (Other)
  Sender: FDA-Public Use
  Company Number: None

PATIENT
  Age: 39 Year
  Sex: Male

DRUGS (1)
  1. PREDNISONE 20 MG [Suspect]
     Dosage: 20 MG TAB PO
     Route: 048
     Dates: start: 20040412

REACTIONS (4)
  - ARTHRALGIA [None]
  - BONE PAIN [None]
  - MOVEMENT DISORDER [None]
  - MUSCLE CONTRACTIONS INVOLUNTARY [None]
